FAERS Safety Report 9517873 (Version 1)
Quarter: 2013Q3

REPORT INFORMATION
  Report Type: Spontaneous
  Country: US (occurrence: None)
  Receive Date: 20130910
  Receipt Date: 20130910
  Transmission Date: 20140515
  Serious: No
  Sender: FDA-Public Use
  Company Number: None

PATIENT
  Age: 63 Year
  Sex: Female

DRUGS (3)
  1. OXCARBAZEPINE [Suspect]
     Indication: EPILEPSY
     Dosage: 2 PILLS AM, 2 PILLS PM
     Route: 048
     Dates: start: 20130220, end: 20130710
  2. PRIMIDONE [Concomitant]
  3. PISPERIDONE 4MG [Concomitant]

REACTIONS (5)
  - Constipation [None]
  - Flatulence [None]
  - Amnesia [None]
  - Weight increased [None]
  - Confusional state [None]
